FAERS Safety Report 12436345 (Version 1)
Quarter: 2016Q2

REPORT INFORMATION
  Report Type: Spontaneous
  Country: US (occurrence: US)
  Receive Date: 20160605
  Receipt Date: 20160605
  Transmission Date: 20160815
  Serious: No
  Sender: FDA-Public Use
  Company Number: US-009507513-1606USA000582

PATIENT
  Age: 48 Year
  Sex: Male

DRUGS (4)
  1. INTRON A [Suspect]
     Active Substance: INTERFERON ALFA-2B
     Indication: MYCOSIS FUNGOIDES
     Dosage: 18 MILLION IU, 2 TIMES A WEEK
     Dates: start: 20150417
  2. TYLENOL [Concomitant]
     Active Substance: ACETAMINOPHEN
     Dosage: UNK
  3. CALCIUM (UNSPECIFIED) [Concomitant]
     Active Substance: CALCIUM
     Dosage: UNK
  4. NIACIN. [Concomitant]
     Active Substance: NIACIN
     Dosage: UNK

REACTIONS (2)
  - Pain [Not Recovered/Not Resolved]
  - Fatigue [Not Recovered/Not Resolved]

NARRATIVE: CASE EVENT DATE: 20160601
